FAERS Safety Report 14158158 (Version 2)
Quarter: 2019Q4

REPORT INFORMATION
  Report Type: Report from Study
  Country: AU (occurrence: AU)
  Receive Date: 20171103
  Receipt Date: 20191011
  Transmission Date: 20200122
  Serious: Yes (Hospitalization)
  Sender: FDA-Public Use
  Company Number: AU-ASTRAZENECA-2017SF11611

PATIENT
  Age: 28564 Day
  Sex: Male
  Weight: 70 kg

DRUGS (8)
  1. DUTASTERIDE. [Concomitant]
     Active Substance: DUTASTERIDE
     Dosage: 500 MG ONCE A DAY
     Route: 048
     Dates: start: 2006
  2. PEMETREXED. [Suspect]
     Active Substance: PEMETREXED
     Indication: MESOTHELIOMA
     Route: 042
  3. APIXABAN [Concomitant]
     Active Substance: APIXABAN
     Dosage: 5 MG TWICE A DAY
     Route: 048
     Dates: start: 2016
  4. DURVALUMAB. [Suspect]
     Active Substance: DURVALUMAB
     Indication: MESOTHELIOMA
     Dosage: 1125 MG DAY 1 ONLY OF 21 DAY CYCLE
     Route: 042
     Dates: start: 20170705
  5. CISPLATIN. [Suspect]
     Active Substance: CISPLATIN
     Indication: MESOTHELIOMA
     Route: 042
  6. OSTELIN [Concomitant]
     Route: 048
     Dates: start: 2010
  7. METOPROLOL. [Concomitant]
     Active Substance: METOPROLOL
     Dosage: 25 MG TWICE A DAY
     Route: 048
     Dates: start: 2016
  8. FOLIC ACID. [Concomitant]
     Active Substance: FOLIC ACID
     Dosage: 500 MG ONCE A DAY
     Route: 048
     Dates: start: 20170701

REACTIONS (1)
  - Diverticulitis [Recovered/Resolved]

NARRATIVE: CASE EVENT DATE: 20171024
